FAERS Safety Report 14230101 (Version 3)
Quarter: 2018Q2

REPORT INFORMATION
  Report Type: Not Available
  Country: US (occurrence: US)
  Receive Date: 20171128
  Receipt Date: 20180419
  Transmission Date: 20180711
  Serious: No
  Sender: FDA-Public Use
  Company Number: US-NEUROCRINE BIOSCIENCES INC.-2017NBI01280

PATIENT
  Sex: Male

DRUGS (2)
  1. INGREZZA [Suspect]
     Active Substance: VALBENAZINE
     Indication: TIC
     Route: 048
     Dates: start: 20170816, end: 20170907
  2. INGREZZA [Suspect]
     Active Substance: VALBENAZINE
     Route: 048
     Dates: start: 20170908, end: 201710

REACTIONS (7)
  - Dysstasia [Unknown]
  - Dizziness [Unknown]
  - Tongue movement disturbance [Unknown]
  - Tremor [Unknown]
  - Off label use [None]
  - Dysphagia [Unknown]
  - Tic [Unknown]

NARRATIVE: CASE EVENT DATE: 2017
